FAERS Safety Report 24597727 (Version 1)
Quarter: 2024Q4

REPORT INFORMATION
  Report Type: Spontaneous
  Country: US (occurrence: US)
  Receive Date: 20241110
  Receipt Date: 20241110
  Transmission Date: 20250114
  Serious: No
  Sender: SANOFI AVENTIS
  Company Number: US-SANOFI-02270857

PATIENT
  Age: 8 Month
  Sex: Female

DRUGS (1)
  1. DUPIXENT [Suspect]
     Active Substance: DUPILUMAB
     Dosage: UNK
     Dates: start: 20241002

REACTIONS (2)
  - Ovarian cyst [Unknown]
  - Breast cyst [Unknown]

NARRATIVE: CASE EVENT DATE: 20241001
